FAERS Safety Report 10751130 (Version 2)
Quarter: 2015Q1

REPORT INFORMATION
  Report Type: Spontaneous
  Country: US (occurrence: US)
  Receive Date: 20150130
  Receipt Date: 20150313
  Transmission Date: 20150721
  Serious: No
  Sender: FDA-Public Use
  Company Number: US-PFIZER INC-2015032686

PATIENT
  Age: 78 Year
  Sex: Male

DRUGS (1)
  1. ADVIL [Suspect]
     Active Substance: IBUPROFEN
     Dosage: UNK, 2X/DAY
     Dates: start: 201411

REACTIONS (3)
  - Pruritus [Unknown]
  - Nasal congestion [Unknown]
  - Dry mouth [Unknown]
